FAERS Safety Report 5326068-6 (Version None)
Quarter: 2007Q2

REPORT INFORMATION
  Report Type: 
  Country: None (occurrence: None)
  Receive Date: 20070516
  Receipt Date: 20070504
  Transmission Date: 20071010
  Serious: Yes (Other)
  Sender: FDA-Public Use
  Company Number: US-JNJFOC-20070302430

PATIENT
  Sex: Male
  Weight: 92.99 kg

DRUGS (3)
  1. VIADUR [Suspect]
     Route: 059
  2. VIADUR [Suspect]
     Route: 059
  3. VIADUR [Suspect]
     Indication: PROSTATE CANCER
     Route: 059

REACTIONS (1)
  - BREAST CANCER [None]
